FAERS Safety Report 20901347 (Version 1)
Quarter: 2022Q2

REPORT INFORMATION
  Report Type: Spontaneous
  Country: US (occurrence: None)
  Receive Date: 20220601
  Receipt Date: 20220601
  Transmission Date: 20220721
  Serious: Yes (Other)
  Sender: FDA-Public Use
  Company Number: None

PATIENT
  Age: 43 Year
  Sex: Female
  Weight: 56.7 kg

DRUGS (2)
  1. PAXLOVID [Suspect]
     Active Substance: NIRMATRELVIR\RITONAVIR
     Indication: COVID-19
     Dosage: OTHER QUANTITY : 30 TABLET(S);?FREQUENCY : TWICE A DAY;?
     Route: 048
     Dates: start: 20220531, end: 20220531
  2. Combivent Duo neb solution for nebulizer Advair [Concomitant]

REACTIONS (3)
  - Dyspnoea [None]
  - Respiratory disorder [None]
  - Pulmonary congestion [None]

NARRATIVE: CASE EVENT DATE: 20220531
